FAERS Safety Report 23747859 (Version 1)
Quarter: 2024Q2

REPORT INFORMATION
  Report Type: Spontaneous
  Country: US (occurrence: None)
  Receive Date: 20240415
  Receipt Date: 20240415
  Transmission Date: 20240715
  Serious: Yes (Hospitalization, Other)
  Sender: FDA-Public Use
  Company Number: None

PATIENT
  Age: 23 Day
  Sex: Female
  Weight: 1.75 kg

DRUGS (1)
  1. NIRSEVIMAB [Suspect]
     Active Substance: NIRSEVIMAB
     Dosage: FREQUENCY : ONCE;?
     Route: 030
     Dates: start: 20231202

REACTIONS (1)
  - Apnoea [None]

NARRATIVE: CASE EVENT DATE: 20231203
